FAERS Safety Report 5864562-X (Version None)
Quarter: 2008Q3

REPORT INFORMATION
  Report Type: 
  Country: None (occurrence: None)
  Receive Date: 20080829
  Receipt Date: 20080827
  Transmission Date: 20090109
  Serious: Yes (Other)
  Sender: FDA-Public Use
  Company Number: JP-JNJFOC-20080805712

PATIENT
  Age: 9 Year
  Sex: Male

DRUGS (3)
  1. CONCERTA [Suspect]
     Route: 048
  2. CONCERTA [Suspect]
     Indication: ATTENTION DEFICIT/HYPERACTIVITY DISORDER
     Dosage: DOSE WAS INCREASED EVERY TWO WEEKS BY 9 MG (SATURDAYS AND SUNDAYS ARE TREATMENT-FREE DAYS)
     Route: 048
  3. RISPERDAL [Suspect]
     Indication: IMPULSIVE BEHAVIOUR
     Route: 048

REACTIONS (3)
  - DEPRESSION [None]
  - MANIA [None]
  - SEDATION [None]
